FAERS Safety Report 14594560 (Version 2)
Quarter: 2018Q1

REPORT INFORMATION
  Report Type: Spontaneous
  Country: US (occurrence: US)
  Receive Date: 20180302
  Receipt Date: 20180323
  Transmission Date: 20180509
  Serious: No
  Sender: FDA-Public Use
  Company Number: US-ELI_LILLY_AND_COMPANY-US201802010946

PATIENT
  Sex: Male

DRUGS (4)
  1. CYMBALTA [Suspect]
     Active Substance: DULOXETINE HYDROCHLORIDE
     Indication: DEPRESSION
     Dosage: 60 MG, UNKNOWN
     Route: 065
     Dates: start: 2007
  2. CYMBALTA [Suspect]
     Active Substance: DULOXETINE HYDROCHLORIDE
     Dosage: 30 MG, UNKNOWN
     Route: 065
     Dates: start: 2007
  3. CYMBALTA [Suspect]
     Active Substance: DULOXETINE HYDROCHLORIDE
     Indication: ANXIETY
     Dosage: 120 MG, UNKNOWN
     Route: 065
     Dates: start: 2007
  4. SEROQUEL [Suspect]
     Active Substance: QUETIAPINE FUMARATE
     Indication: INSOMNIA
     Dosage: UNK, UNKNOWN
     Route: 065

REACTIONS (18)
  - Headache [Unknown]
  - Insomnia [Unknown]
  - Wrong technique in product usage process [Unknown]
  - Irritability [Unknown]
  - Fatigue [Unknown]
  - Type 2 diabetes mellitus [Unknown]
  - Hot flush [Unknown]
  - Weight increased [Unknown]
  - Constipation [Unknown]
  - Depression [Unknown]
  - Feeling abnormal [Unknown]
  - Diarrhoea [Unknown]
  - Expired product administered [Unknown]
  - Mental disorder [Unknown]
  - Hepatic enzyme increased [Unknown]
  - Nightmare [Unknown]
  - Asthenia [Unknown]
  - Memory impairment [Unknown]
